FAERS Safety Report 9997900 (Version 1)
Quarter: 2014Q1

REPORT INFORMATION
  Report Type: Spontaneous
  Country: US (occurrence: US)
  Receive Date: 20140311
  Receipt Date: 20140311
  Transmission Date: 20141002
  Serious: No
  Sender: FDA-Public Use
  Company Number: US-PFIZER INC-2014066252

PATIENT
  Age: 51 Year
  Sex: Male

DRUGS (2)
  1. ADVIL [Suspect]
     Dosage: UNK
  2. TYLENOL [Suspect]
     Dosage: UNK

REACTIONS (1)
  - Drug ineffective [Unknown]
